FAERS Safety Report 19656321 (Version 1)
Quarter: 2021Q3

REPORT INFORMATION
  Report Type: Spontaneous
  Country: NL (occurrence: NL)
  Receive Date: 20210804
  Receipt Date: 20210804
  Transmission Date: 20211014
  Serious: Yes (Hospitalization)
  Sender: FDA-Public Use
  Company Number: NL-TEVA-2021-NL-1938908

PATIENT
  Age: 80 Year
  Sex: Male
  Weight: 81 kg

DRUGS (6)
  1. HYDROXOCOBALAMINE INJVLST  500UG/ML / BRAND NAME NOT SPECIFIED [Concomitant]
     Dosage: INJECTION FLUID 500 UG/ML (MICROGRAM PER MILLILITER)THERAPY START DATE :THERAPY END DATE :ASKU
  2. SIMVASTATINE TABLET FO 20MG / BRAND NAME NOT SPECIFIED [Concomitant]
     Active Substance: SIMVASTATIN
     Dosage: 20 MG (MILLIGRAM)THERAPY START DATE :THERAPY END DATE :ASKU
  3. LISINOPRIL TABLET  5MG / BRAND NAME NOT SPECIFIED [Suspect]
     Active Substance: LISINOPRIL
     Indication: HYPERTENSION
     Dosage: 5 MILLIGRAM DAILY; 1 X PER DAY 1 PIECE
     Dates: start: 20210701, end: 20210720
  4. OMEPRAZOL CAPSULE MSR 20MG / BPH MAAGZUURREMMENDE CAPS OMEPRAZOL CAPS [Concomitant]
     Dosage: 20 MG (MILLIGRAM)THERAPY START DATE:THERAPY END DATE:ASKU
  5. METOPROLOL TABLET MGA  50MG (SUCCINAAT) / BRAND NAME NOT SPECIFIED [Concomitant]
     Active Substance: METOPROLOL SUCCINATE
     Dosage: 50 MG (MILLIGRAM)THERAPY START DATE :THERAPY END DATE:ASKU
  6. ACETYLSALICYLZUUR TABLET  80MG / BRAND NAME NOT SPECIFIED [Concomitant]
     Active Substance: ASPIRIN
     Dosage: 80 MG (MILLIGRAM)THERAPY START DATE:THERAPY END DATE :ASKU

REACTIONS (1)
  - Pancreatitis acute [Not Recovered/Not Resolved]

NARRATIVE: CASE EVENT DATE: 20210720
